FAERS Safety Report 9269953 (Version 2)
Quarter: 2013Q4

REPORT INFORMATION
  Report Type: Report from Study
  Country: US (occurrence: US)
  Receive Date: 20130503
  Receipt Date: 20131111
  Transmission Date: 20140711
  Serious: Yes (Other)
  Sender: FDA-Public Use
  Company Number: US-JNJFOC-20130413316

PATIENT
  Age: 24 Year
  Sex: Female

DRUGS (14)
  1. REMICADE [Suspect]
     Indication: COLITIS ULCERATIVE
     Dosage: RECEIVED 5 INFUSIONS
     Route: 042
  2. 6 MP [Concomitant]
     Route: 065
  3. PREDNISONE [Concomitant]
     Route: 042
  4. FLAGYL [Concomitant]
     Route: 042
  5. PENICILLIN [Concomitant]
     Route: 042
  6. IRON [Concomitant]
     Route: 065
  7. VITAMIN D [Concomitant]
     Route: 065
  8. CALCIUM [Concomitant]
     Route: 065
  9. COLLAGEN [Concomitant]
     Route: 065
  10. L-GLUTAMINE [Concomitant]
     Route: 065
  11. MAGNESIUM CITRATE [Concomitant]
     Dosage: SOME DAYS
     Route: 065
  12. VITAMIN C [Concomitant]
     Dosage: SOME DAYS
     Route: 065
  13. ZYFLAMEND [Concomitant]
     Dosage: SOME DAYS
     Route: 065
  14. FISH OIL [Concomitant]
     Dosage: SOME DAYS
     Route: 065

REACTIONS (4)
  - Joint lock [Unknown]
  - Headache [Recovered/Resolved]
  - Drug specific antibody present [Unknown]
  - Drug ineffective [Unknown]
